FAERS Safety Report 5766493-2 (Version None)
Quarter: 2008Q2

REPORT INFORMATION
  Report Type: 
  Country: None (occurrence: None)
  Receive Date: 20080606
  Receipt Date: 20080529
  Transmission Date: 20081010
  Serious: Yes (Hospitalization, Other)
  Sender: FDA-Public Use
  Company Number: 2008SP010246

PATIENT
  Age: 5 Year
  Sex: Male

DRUGS (3)
  1. DESLORATADINE [Suspect]
     Indication: LARYNGITIS
     Dosage: 2.5 MG;QD;PO
     Route: 048
  2. DESLORATADINE [Suspect]
     Indication: RHINITIS
     Dosage: 2.5 MG;QD;PO
     Route: 048
  3. DESLORATADINE [Suspect]
     Indication: TRACHEITIS
     Dosage: 2.5 MG;QD;PO
     Route: 048

REACTIONS (5)
  - AGITATION [None]
  - FATIGUE [None]
  - HYPOTONIA [None]
  - SLEEP DISORDER [None]
  - UNRESPONSIVE TO STIMULI [None]
